FAERS Safety Report 9525774 (Version 1)
Quarter: 2013Q3

REPORT INFORMATION
  Report Type: Spontaneous
  Country: US (occurrence: US)
  Receive Date: 20130915
  Receipt Date: 20130915
  Transmission Date: 20140515
  Serious: Yes (Hospitalization, Other)
  Sender: FDA-Public Use
  Company Number: US-AMGEN-USASP2013064453

PATIENT
  Age: 18 Year
  Sex: Female
  Weight: 54.42 kg

DRUGS (6)
  1. ENBREL [Suspect]
     Indication: PRODUCT USED FOR UNKNOWN INDICATION
     Dosage: 50 MG, QWK
     Route: 058
     Dates: start: 201110
  2. CAPTOPRIL [Concomitant]
     Dosage: 12.5 MG, UNK
  3. VITAMIN D                          /00107901/ [Concomitant]
     Dosage: 1000 UNIT
  4. ASPIRIN [Concomitant]
     Dosage: 81 MG, UNK
  5. CALCIUM [Concomitant]
     Dosage: 500
  6. MULTIVITAMINS, PLAIN [Concomitant]
     Dosage: UNK

REACTIONS (1)
  - Cerebrovascular accident [Unknown]
